FAERS Safety Report 25533871 (Version 2)
Quarter: 2025Q3

REPORT INFORMATION
  Report Type: Spontaneous
  Country: US (occurrence: US)
  Receive Date: 20250709
  Receipt Date: 20250729
  Transmission Date: 20251020
  Serious: Yes (Other)
  Sender: ROCHE
  Company Number: US-ROCHE-10000326469

PATIENT
  Sex: Female
  Weight: 96.62 kg

DRUGS (3)
  1. XOLAIR PFS [Suspect]
     Active Substance: OMALIZUMAB
     Indication: Idiopathic urticaria
     Dosage: 300 MG/2ML
     Route: 058
     Dates: start: 20250528
  2. XOLAIR PFS [Suspect]
     Active Substance: OMALIZUMAB
  3. ASPIRIN [Concomitant]
     Active Substance: ASPIRIN

REACTIONS (1)
  - Maternal exposure during pregnancy [Unknown]
